FAERS Safety Report 8061902-0 (Version None)
Quarter: 2012Q1

REPORT INFORMATION
  Report Type: 
  Country: None (occurrence: None)
  Receive Date: 20120117
  Receipt Date: 20120110
  Transmission Date: 20120608
  Serious: Yes (Other)
  Sender: FDA-Public Use
  Company Number: ADR-2010-9103

PATIENT
  Age: 63 Year
  Sex: Female

DRUGS (3)
  1. LIORESAL [Suspect]
     Indication: MUSCLE SPASTICITY
     Dosage: SEE B5 MCG, DAILY, INTR
     Route: 037
  2. BUPIVACAINE HCL [Concomitant]
  3. DILAUDID [Concomitant]

REACTIONS (7)
  - POST PROCEDURAL COMPLICATION [None]
  - SEROMA [None]
  - PAIN [None]
  - DRUG WITHDRAWAL SYNDROME [None]
  - INTRACRANIAL HYPOTENSION [None]
  - HYPOAESTHESIA [None]
  - DRUG INEFFECTIVE [None]
